FAERS Safety Report 10612240 (Version 1)
Quarter: 2014Q4

REPORT INFORMATION
  Report Type: Spontaneous
  Country: DE (occurrence: DE)
  Receive Date: 20141127
  Receipt Date: 20141127
  Transmission Date: 20150529
  Serious: Yes (Hospitalization)
  Sender: FDA-Public Use
  Company Number: DE-AUROBINDO-AUR-APL-2014-12363

PATIENT
  Age: 25 Year
  Sex: Male
  Weight: 97 kg

DRUGS (11)
  1. LORAZEPAM. [Concomitant]
     Active Substance: LORAZEPAM
     Dosage: 1.5 MG, DAILY
     Route: 048
     Dates: start: 20131224, end: 20131226
  2. LORAZEPAM. [Concomitant]
     Active Substance: LORAZEPAM
     Dosage: 2 MG, DAILY
     Route: 048
     Dates: start: 20131205, end: 20131223
  3. OLANZAPINE. [Suspect]
     Active Substance: OLANZAPINE
     Dosage: 30-10 MG
     Route: 048
     Dates: start: 20131231, end: 20140114
  4. OLANZAPINE. [Suspect]
     Active Substance: OLANZAPINE
     Dosage: 10 MG, DAILY
     Route: 048
     Dates: start: 20140115
  5. OLANZAPINE. [Suspect]
     Active Substance: OLANZAPINE
     Indication: PRODUCT USED FOR UNKNOWN INDICATION
     Dosage: 10 MG, DAILY
     Route: 048
     Dates: start: 20131127, end: 20131202
  6. LORAZEPAM. [Concomitant]
     Active Substance: LORAZEPAM
     Dosage: 1 MG, DAILY
     Route: 048
     Dates: start: 20131227, end: 20140101
  7. OLANZAPINE. [Suspect]
     Active Substance: OLANZAPINE
     Dosage: 20 MG, DAILY
     Route: 048
     Dates: start: 20131206, end: 20131212
  8. OLANZAPINE. [Suspect]
     Active Substance: OLANZAPINE
     Dosage: 25 MG, DAILY
     Route: 048
     Dates: start: 20131213, end: 20131217
  9. OLANZAPINE. [Suspect]
     Active Substance: OLANZAPINE
     Dosage: 15 MG, DAILY
     Route: 048
     Dates: start: 20131203, end: 20131205
  10. OLANZAPINE. [Suspect]
     Active Substance: OLANZAPINE
     Dosage: 30 MG, DAILY
     Route: 048
     Dates: start: 20131218, end: 20131230
  11. LORAZEPAM. [Concomitant]
     Active Substance: LORAZEPAM
     Indication: PRODUCT USED FOR UNKNOWN INDICATION
     Dosage: 3 MG, DAILY
     Route: 048
     Dates: start: 20131127, end: 20131204

REACTIONS (1)
  - Appetite disorder [Recovering/Resolving]

NARRATIVE: CASE EVENT DATE: 20131216
